FAERS Safety Report 4301818-6 (Version None)
Quarter: 2004Q1

REPORT INFORMATION
  Report Type: 
  Country: None (occurrence: None)
  Receive Date: 20040218
  Receipt Date: 20030828
  Transmission Date: 20041129
  Serious: Yes (Hospitalization)
  Sender: FDA-Public Use
  Company Number: 2003169045US

PATIENT
  Age: 52 Year
  Sex: Female

DRUGS (3)
  1. DELTASONE [Suspect]
     Dosage: ORAL
     Route: 048
  2. CLOZAPINE [Suspect]
     Indication: SCHIZOAFFECTIVE DISORDER
     Dates: start: 20010701
  3. ANTIBIOTICS() [Suspect]

REACTIONS (1)
  - PSYCHOTIC DISORDER [None]
